FAERS Safety Report 7484119-7 (Version None)
Quarter: 2011Q2

REPORT INFORMATION
  Report Type: 
  Country: None (occurrence: None)
  Receive Date: 20110517
  Receipt Date: 20100116
  Transmission Date: 20111010
  Serious: Yes (Death, Other)
  Sender: FDA-Public Use
  Company Number: US-BAYER-201011409NA

PATIENT
  Age: 65 Year
  Sex: Female
  Weight: 71 kg

DRUGS (43)
  1. TRASYLOL [Suspect]
     Dosage: THERAPY RE-STARTED, UNK DOSE
     Route: 042
     Dates: start: 20050301, end: 20050301
  2. LOTENSIN [Concomitant]
     Dosage: 40 MG, BID
     Route: 048
     Dates: start: 19980401, end: 20050316
  3. FENTANYL [Concomitant]
     Dosage: 10 ML, UNK
     Route: 042
     Dates: start: 20050316, end: 20050316
  4. PROPOFOL [Concomitant]
     Dosage: 20 CC/HR INFUSION
     Route: 042
     Dates: start: 20050316, end: 20050317
  5. LABETALOL [Concomitant]
     Dosage: 5 UNK
     Route: 042
     Dates: start: 20050316, end: 20050316
  6. HEPARIN [Concomitant]
     Dosage: 300000 UNITS
     Route: 042
     Dates: start: 20050316, end: 20050316
  7. FRESH FROZEN PLASMA [Concomitant]
     Dosage: 3 U, UNK
     Route: 042
     Dates: start: 20050301, end: 20050301
  8. LOPRESSOR [Concomitant]
     Dosage: 50 MG, UNK
     Route: 042
     Dates: start: 20050316, end: 20050316
  9. HEPARIN [Concomitant]
     Dosage: 8000 UNITS
     Route: 042
     Dates: start: 20050316, end: 20050316
  10. LIDOCAINE [Concomitant]
     Dosage: 300 MG, UNK
     Route: 042
     Dates: start: 20050316, end: 20050316
  11. SODIUM BICARBONATE [Concomitant]
     Dosage: 1 AMP
     Route: 042
     Dates: start: 20050316, end: 20050316
  12. ALBUMIN [ALBUMEN] [Concomitant]
     Dosage: 100 MG, UNK
     Route: 042
     Dates: start: 20050316, end: 20050316
  13. TRASYLOL [Suspect]
     Dosage: 200 ML (PUMP PRIME)
     Route: 042
     Dates: start: 20050301, end: 20050301
  14. ATENOLOL [Concomitant]
     Dosage: 50 MG, BID
     Route: 048
  15. ACETYLSALICYLIC ACID SRT [Concomitant]
     Dosage: 1 TABLET, QD
     Route: 048
  16. CRYOPRECIPITATES [Concomitant]
     Dosage: UNK
     Dates: start: 20050317, end: 20050317
  17. CARDIOPLEGIA [Concomitant]
     Dosage: 40 UNK
     Route: 042
     Dates: start: 20050316, end: 20050316
  18. CRESTOR [Concomitant]
     Dosage: 10 MG, QD
     Route: 048
  19. ISOFLURANE [Concomitant]
     Dosage: 0.6 INHALANT
     Route: 055
     Dates: start: 20050316, end: 20050316
  20. VERSED [Concomitant]
     Dosage: 2 MG, UNK
     Route: 042
     Dates: start: 20050316, end: 20050316
  21. TRASYLOL [Suspect]
     Dosage: 200 ML (LOADING)
     Route: 042
     Dates: start: 20050301, end: 20050301
  22. FENTANYL [Concomitant]
     Dosage: 200 MCG/HR INFUSION
     Route: 042
     Dates: start: 20050316, end: 20050316
  23. ANCEF [Concomitant]
     Dosage: 2 G, UNK
     Route: 042
     Dates: start: 20050316, end: 20050316
  24. ESMOLOL [Concomitant]
     Dosage: 20 MG, UNK
     Route: 042
     Dates: start: 20050316, end: 20050316
  25. PROTAMINE SULFATE [Concomitant]
     Dosage: 400 MG, UNK
     Route: 042
     Dates: start: 20050316, end: 20050316
  26. HEPARIN [Concomitant]
     Dosage: 25000 U, UNK
     Route: 042
     Dates: start: 20050316, end: 20050316
  27. ISOFLURANE [Concomitant]
     Dosage: 1.0 INHALANT
     Route: 055
     Dates: start: 20050316, end: 20050316
  28. MANNITOL [Concomitant]
     Dosage: 100 MG, UNK
     Dates: start: 20050316, end: 20050316
  29. INSULIN [INSULIN] [Concomitant]
     Dosage: 5 U, UNK
     Route: 042
     Dates: start: 20050316, end: 20050316
  30. LEVOTHYROXINE SODIUM [Concomitant]
     Dosage: 100 G, UNK
     Route: 042
     Dates: start: 20050316, end: 20050316
  31. TRASYLOL [Suspect]
     Indication: CORONARY ARTERY BYPASS
     Dosage: 1 ML, ONCE (INITIAL)
     Route: 042
     Dates: start: 20050301, end: 20050301
  32. NIMBEX [Concomitant]
     Dosage: 10 MG/HR
     Route: 042
     Dates: start: 20050316, end: 20050317
  33. LEVOPHED [Concomitant]
     Dosage: 4-8-11-14-16-20 MCG/HR
     Route: 042
     Dates: start: 20050316, end: 20050316
  34. CALCIUM CHLORIDE [Concomitant]
     Dosage: 1 G, UNK
     Route: 042
     Dates: start: 20050316, end: 20050316
  35. EPINEPHRINE [Concomitant]
     Dosage: 5 MG, UNK
     Route: 042
     Dates: start: 20050316, end: 20050316
  36. PRIMACOR [Concomitant]
     Dosage: 0.5 MCG/KG/MIN
     Route: 042
     Dates: start: 20050316, end: 20050316
  37. RED BLOOD CELLS, CONCENTRATED [Concomitant]
     Dosage: 11 U, UNK
     Route: 042
     Dates: start: 20050301, end: 20050301
  38. PROPOFOL [Concomitant]
     Dosage: 50 MG, ONCE
     Route: 042
     Dates: start: 20050316, end: 20050316
  39. TRASYLOL [Suspect]
     Dosage: 50 ML/HR (INFUSION)
     Route: 042
     Dates: start: 20050301, end: 20050301
  40. ZETIA [Concomitant]
     Dosage: 10 MG, QD
     Route: 048
  41. ESMOLOL [Concomitant]
     Dosage: 120 MG, UNK
     Route: 042
     Dates: start: 20050316, end: 20050316
  42. EPINEPHRINE [Concomitant]
     Dosage: 4-8 MCG/MIN INFUSION
     Route: 042
     Dates: start: 20050316, end: 20050316
  43. SOLU-MEDROL [Concomitant]
     Dosage: 1 G, UNK
     Route: 042
     Dates: start: 20050316

REACTIONS (14)
  - ANXIETY [None]
  - ANHEDONIA [None]
  - INJURY [None]
  - CARDIAC DISORDER [None]
  - DEPRESSION [None]
  - UNEVALUABLE EVENT [None]
  - FEAR [None]
  - PAIN [None]
  - DEATH [None]
  - RENAL INJURY [None]
  - MULTI-ORGAN FAILURE [None]
  - CEREBROVASCULAR ACCIDENT [None]
  - RENAL FAILURE [None]
  - RENAL IMPAIRMENT [None]
